FAERS Safety Report 9648702 (Version 1)
Quarter: 2013Q4

REPORT INFORMATION
  Report Type: Spontaneous
  Country: US (occurrence: US)
  Receive Date: 20131028
  Receipt Date: 20131028
  Transmission Date: 20140711
  Serious: No
  Sender: FDA-Public Use
  Company Number: US-MYLANLABS-2013S1018542

PATIENT
  Age: 46 Year
  Sex: Male

DRUGS (3)
  1. RISPERIDONE TABLETS USP [Suspect]
     Route: 048
     Dates: start: 201211
  2. ATENOLOL [Concomitant]
  3. VERAPAMIL HCL EXTENDED RELEASE [Concomitant]

REACTIONS (1)
  - Dizziness [Not Recovered/Not Resolved]
